FAERS Safety Report 5152525-1 (Version None)
Quarter: 2006Q4

REPORT INFORMATION
  Report Type: 
  Country: None (occurrence: None)
  Receive Date: 20061116
  Receipt Date: 20060925
  Transmission Date: 20070319
  Serious: Yes (Other)
  Sender: FDA-Public Use
  Company Number: US-ELI_LILLY_AND_COMPANY-US200609006151

PATIENT
  Age: 48 Year
  Sex: Male

DRUGS (3)
  1. HUMULIN N [Suspect]
     Indication: DIABETES MELLITUS
     Dosage: 15 U, DAILY (1/D)
     Dates: start: 19860101
  2. HUMULIN R [Suspect]
     Dosage: 6 U, DAILY (1/D)
     Dates: start: 19860101
  3. INSULIN, ANIMAL [Suspect]
     Indication: DIABETES MELLITUS INSULIN-DEPENDENT
     Dosage: UNK, UNK
     Dates: start: 19680101

REACTIONS (6)
  - BLOOD GLUCOSE INCREASED [None]
  - CONVULSION [None]
  - DRUG INEFFECTIVE [None]
  - PHARMACEUTICAL PRODUCT COMPLAINT [None]
  - TEMPORAL LOBE EPILEPSY [None]
  - TUNNEL VISION [None]
